FAERS Safety Report 6872827-8 (Version None)
Quarter: 2010Q3

REPORT INFORMATION
  Report Type: 
  Country: None (occurrence: None)
  Receive Date: 20100723
  Receipt Date: 20081125
  Transmission Date: 20110219
  Serious: No
  Sender: FDA-Public Use
  Company Number: US-PFIZER INC-2008091993

PATIENT
  Sex: Female
  Weight: 102.3 kg

DRUGS (4)
  1. CHANTIX [Suspect]
     Indication: SMOKING CESSATION THERAPY
     Route: 048
     Dates: start: 20081001
  2. VITAMINS [Concomitant]
  3. OMEPRAZOLE [Concomitant]
  4. NAPROXEN [Concomitant]

REACTIONS (1)
  - ALOPECIA [None]
